FAERS Safety Report 23597942 (Version 1)
Quarter: 2024Q1

REPORT INFORMATION
  Report Type: Spontaneous
  Country: US (occurrence: US)
  Receive Date: 20240305
  Receipt Date: 20240305
  Transmission Date: 20240409
  Serious: No
  Sender: FDA-Public Use
  Company Number: US-BRISTOL-MYERS SQUIBB COMPANY-2024-035095

PATIENT
  Age: 82 Year
  Sex: Male
  Weight: 77.11 kg

DRUGS (1)
  1. REVLIMID [Suspect]
     Active Substance: LENALIDOMIDE
     Indication: Plasma protein metabolism disorder
     Dosage: 21D ON 7D OFF
     Route: 048

REACTIONS (2)
  - Rash pruritic [Recovering/Resolving]
  - Off label use [Unknown]
